FAERS Safety Report 5581238-7 (Version None)
Quarter: 2007Q4

REPORT INFORMATION
  Report Type: 
  Country: None (occurrence: None)
  Receive Date: 20071130
  Receipt Date: 20070705
  Transmission Date: 20080405
  Serious: No
  Sender: FDA-Public Use
  Company Number: US200707001595

PATIENT
  Age: 55 Year
  Sex: Female

DRUGS (15)
  1. BYETTA [Suspect]
     Indication: TYPE 2 DIABETES MELLITUS
     Dosage: 5 UG,10 UG, 2/D, SUBCUTANEOUS
     Route: 058
     Dates: start: 20070101, end: 20070201
  2. BYETTA [Suspect]
     Indication: TYPE 2 DIABETES MELLITUS
     Dosage: 5 UG,10 UG, 2/D, SUBCUTANEOUS
     Route: 058
     Dates: start: 20070201, end: 20070201
  3. BYETTA [Suspect]
     Indication: TYPE 2 DIABETES MELLITUS
     Dosage: 5 UG,10 UG, 2/D, SUBCUTANEOUS
     Route: 058
     Dates: start: 20070702
  4. HUMULIN /PR/ (INSULIN HUMAN) [Concomitant]
  5. GLYBURIDE [Concomitant]
  6. PRANDIN/USA/ (REPAGLINIDE) [Concomitant]
  7. LASIX [Concomitant]
  8. POTASSIUM CHLORIDE [Concomitant]
  9. ZAROXOLYN [Concomitant]
  10. ZESTRIL [Concomitant]
  11. SINGULAIR [Concomitant]
  12. VYTORIN [Concomitant]
  13. ASPIRIN [Concomitant]
  14. ADVAIR DISKUS 100/50 [Concomitant]
  15. ALBUTEROL [Concomitant]

REACTIONS (4)
  - BLOOD GLUCOSE INCREASED [None]
  - GLYCOSYLATED HAEMOGLOBIN INCREASED [None]
  - OEDEMA [None]
  - WEIGHT FLUCTUATION [None]
